FAERS Safety Report 8777856 (Version 2)
Quarter: 2012Q4

REPORT INFORMATION
  Report Type: 
  Country: BE (occurrence: BE)
  Receive Date: 20120912
  Receipt Date: 20120912
  Transmission Date: 20130627
  Serious: Yes (Hospitalization, Other)
  Sender: FDA-Public Use
  Company Number: PHHY2012BE077537

PATIENT
  Age: 82 Year
  Sex: Male

DRUGS (1)
  1. SANDOSTATIN LAR [Suspect]
     Indication: DIARRHOEA
     Dosage: 30 mg, every 4 weeks
     Route: 030
     Dates: start: 20090309

REACTIONS (3)
  - Myocardial infarction [Recovered/Resolved]
  - Arteriosclerosis [Unknown]
  - Carotid arteriosclerosis [None]
